FAERS Safety Report 21323884 (Version 1)
Quarter: 2022Q3

REPORT INFORMATION
  Report Type: Spontaneous
  Country: BE (occurrence: BE)
  Receive Date: 20220912
  Receipt Date: 20220912
  Transmission Date: 20221026
  Serious: Yes (Other)
  Sender: FDA-Public Use
  Company Number: None

PATIENT
  Age: 50 Year
  Sex: Female
  Weight: 66 kg

DRUGS (14)
  1. CARBOPLATIN [Suspect]
     Active Substance: CARBOPLATIN
     Dosage: UNK
     Dates: end: 20210323
  2. MEDROL [Concomitant]
     Active Substance: METHYLPREDNISOLONE
     Dosage: 1 DF, 1X/DAY IN THE MORNING
     Route: 048
  3. ACETAMINOPHEN [Concomitant]
     Active Substance: ACETAMINOPHEN
     Indication: Pain
     Dosage: 1 DF, AS NEEDED EVERY 6H
  4. BEXSERO [Concomitant]
     Active Substance: NEISSERIA MENINGITIDIS GROUP B FHBP FUSION PROTEIN ANTIGEN\NEISSERIA MENINGITIDIS GROUP B NADA PROTE
     Dosage: 1ST VACCINE 2 WEEKS POSTOPERATIVELY, 2ND VACCINE 1 MONTH AFTER ADMINISTRATION OF 1ST VACCINE
     Route: 030
  5. LITICAN [ALIZAPRIDE] [Concomitant]
     Indication: Nausea
     Dosage: 1 DF, EVERY 4 HRS
  6. BOOSTRIX [Concomitant]
     Active Substance: TETANUS TOXOID, REDUCED DIPHTHERIA TOXOID AND ACELLULAR PERTUSSIS VACCINE, ADSORBED ANTIGENS
     Indication: Tetanus immunisation
     Dosage: UNK
     Route: 030
  7. AUGMENTIN [Concomitant]
     Active Substance: AMOXICILLIN\CLAVULANATE POTASSIUM
     Dosage: 1 DF, 3X/DAY
     Route: 048
  8. ENOXAPARIN SODIUM [Concomitant]
     Active Substance: ENOXAPARIN SODIUM
     Dosage: 1 DF, 1X/DAY AT 8 P.M. UP TO 30 DAYS AFTER HOSPITAL DISCHARGE
     Route: 058
  9. MOVICOL [Concomitant]
     Active Substance: POLYETHYLENE GLYCOL 3350\POTASSIUM CHLORIDE\SODIUM BICARBONATE\SODIUM CHLORIDE
     Indication: Constipation
     Dosage: 1 DF, 2X/DAY
  10. IBUPROFEN [Concomitant]
     Active Substance: IBUPROFEN
     Indication: Pain
     Dosage: 1 DF, AS NEEDED UP TO 3X/DAY, 2ND CHOICE FOR PAIN AFTER PARACETAMOL
     Route: 048
  11. DIPROSONE [Concomitant]
     Active Substance: BETAMETHASONE DIPROPIONATE
     Dosage: 1X/DAY NECK
     Route: 003
  12. DIPROSONE [Concomitant]
     Active Substance: BETAMETHASONE DIPROPIONATE
     Dosage: 2X/DAY BREASTS
     Route: 003
  13. CETIRIZINE HYDROCHLORIDE [Concomitant]
     Active Substance: CETIRIZINE HYDROCHLORIDE
     Dosage: 1 DF, 1X/DAY IN THE EVENING
     Route: 048
  14. BISOPROLOL FUMARATE [Concomitant]
     Active Substance: BISOPROLOL FUMARATE
     Dosage: 0.5 DF, 1X/DAY
     Route: 048

REACTIONS (4)
  - Angioedema [Recovered/Resolved]
  - Oxygen saturation decreased [Recovered/Resolved]
  - Dyspnoea [Recovered/Resolved]
  - Rash [Unknown]

NARRATIVE: CASE EVENT DATE: 20210326
